FAERS Safety Report 9962178 (Version 1)
Quarter: 2014Q1

REPORT INFORMATION
  Report Type: Report from Study
  Country: US (occurrence: US)
  Receive Date: 20140305
  Receipt Date: 20140305
  Transmission Date: 20141002
  Serious: No
  Sender: FDA-Public Use
  Company Number: US-ABBVIE-13P-163-1115754-00

PATIENT
  Age: 50 Year
  Sex: Female

DRUGS (4)
  1. HUMIRA [Suspect]
     Indication: CROHN^S DISEASE
     Dates: start: 20130506
  2. TOPAMAX [Concomitant]
     Indication: MIGRAINE
  3. EFFEXOR [Concomitant]
     Indication: DEPRESSION
  4. ASACOL [Concomitant]
     Indication: CROHN^S DISEASE

REACTIONS (4)
  - Abdominal pain [Not Recovered/Not Resolved]
  - Rectal haemorrhage [Recovering/Resolving]
  - Migraine [Recovered/Resolved]
  - Migraine [Recovered/Resolved]
